FAERS Safety Report 8053640-5 (Version None)
Quarter: 2012Q1

REPORT INFORMATION
  Report Type: 
  Country: None (occurrence: None)
  Receive Date: 20120118
  Receipt Date: 20120116
  Transmission Date: 20120608
  Serious: No
  Sender: FDA-Public Use
  Company Number: US-PFIZER INC-2012011629

PATIENT
  Sex: Female

DRUGS (1)
  1. IBUPROFEN (ADVIL) [Suspect]
     Indication: RHEUMATOID ARTHRITIS
     Dosage: UNK, 2X/DAY
     Route: 048
     Dates: start: 20120101, end: 20120101

REACTIONS (6)
  - RASH MACULAR [None]
  - PRURITUS [None]
  - HANGOVER [None]
  - SWELLING FACE [None]
  - NAUSEA [None]
  - ERYTHEMA [None]
